FAERS Safety Report 5087240-6 (Version None)
Quarter: 2006Q3

REPORT INFORMATION
  Report Type: 
  Country: None (occurrence: None)
  Receive Date: 20060821
  Receipt Date: 20060807
  Transmission Date: 20061208
  Serious: Yes (Hospitalization, Other)
  Sender: FDA-Public Use
  Company Number: HQWYE515231JUL06

PATIENT
  Age: 77 Year
  Sex: Female

DRUGS (6)
  1. ARTANE [Suspect]
     Indication: DEPRESSION
     Dosage: SEE IMAGE
     Route: 048
  2. BIPERIDEN (BIPERIDEN, ) [Suspect]
     Dosage: SEE IMAGE
     Route: 048
  3. DIAZEPAM [Suspect]
     Dosage: SEE IMAGE
     Route: 048
  4. DONEPEZIL HCL [Concomitant]
  5. PROMETHAZINE [Concomitant]
  6. SULPIRIDE (SULPIRIDE) [Concomitant]

REACTIONS (9)
  - ABNORMAL BEHAVIOUR [None]
  - CEREBRAL ATROPHY [None]
  - CEREBRAL VENTRICLE DILATATION [None]
  - DELIRIUM [None]
  - DELUSION [None]
  - DEPRESSED LEVEL OF CONSCIOUSNESS [None]
  - DISORIENTATION [None]
  - HALLUCINATION [None]
  - MEMORY IMPAIRMENT [None]
